FAERS Safety Report 6898150-3 (Version None)
Quarter: 2010Q3

REPORT INFORMATION
  Report Type: 
  Country: None (occurrence: None)
  Receive Date: 20100802
  Receipt Date: 20070910
  Transmission Date: 20110219
  Serious: Yes (Other)
  Sender: FDA-Public Use
  Company Number: US-PFIZER INC-2007076051

PATIENT
  Sex: Female
  Weight: 62.272 kg

DRUGS (3)
  1. LYRICA [Suspect]
     Indication: CONVULSION
     Dates: start: 20060101
  2. ANTIHYPERTENSIVES [Concomitant]
  3. VITAMINS [Concomitant]

REACTIONS (3)
  - DISTURBANCE IN ATTENTION [None]
  - VISION BLURRED [None]
  - WEIGHT INCREASED [None]
